FAERS Safety Report 18298648 (Version 5)
Quarter: 2020Q4

REPORT INFORMATION
  Report Type: Report from Study
  Country: CZ (occurrence: CZ)
  Receive Date: 20200922
  Receipt Date: 20201119
  Transmission Date: 20210113
  Serious: Yes (Hospitalization)
  Sender: FDA-Public Use
  Company Number: CZ-PFIZER INC-2020359346

PATIENT
  Age: 64 Year
  Sex: Female
  Weight: 66 kg

DRUGS (16)
  1. AMCENESTRANT. [Suspect]
     Active Substance: AMCENESTRANT
     Dosage: 200 MG, 1X/DAY
     Route: 048
     Dates: start: 20200909, end: 20200910
  2. CARAMLO [Concomitant]
     Active Substance: AMLODIPINE BESYLATE\CANDESARTAN CILEXETIL
     Dosage: UNK
     Route: 048
     Dates: start: 2017
  3. ESPUMISAN [DIMETICONE] [Concomitant]
     Dosage: UNK
     Route: 048
     Dates: start: 20200708
  4. DETRALEX [Concomitant]
     Active Substance: DIOSMIN\HESPERIDIN
     Indication: PROPHYLAXIS
     Dosage: UNK
     Route: 048
     Dates: start: 20200812, end: 20200915
  5. PALBOCICLIB [Suspect]
     Active Substance: PALBOCICLIB
     Indication: INVASIVE DUCTAL BREAST CARCINOMA
     Dosage: 100 MG, 1X/DAY
     Route: 048
     Dates: start: 20200617, end: 20200617
  6. CALCIUM [Concomitant]
     Active Substance: CALCIUM
     Indication: PROPHYLAXIS
     Dosage: UNK
     Route: 048
     Dates: start: 2014
  7. MAGNOSOLV [Concomitant]
     Active Substance: MAGNESIUM CARBONATE\MAGNESIUM OXIDE
     Dosage: UNK
     Route: 048
     Dates: start: 20200713
  8. EUTHYROX [Concomitant]
     Active Substance: LEVOTHYROXINE SODIUM
     Dosage: UNK
     Route: 048
     Dates: start: 201405
  9. DOLSIN [Concomitant]
     Dosage: UNK
     Route: 003
     Dates: start: 20200907, end: 20200907
  10. KORYLAN [CODEINE PHOSPHATE;PARACETAMOL] [Concomitant]
     Indication: PROPHYLAXIS
     Dosage: UNK
     Route: 048
     Dates: start: 201505
  11. PALBOCICLIB [Suspect]
     Active Substance: PALBOCICLIB
     Dosage: 100 MG, 1X/DAY
     Route: 048
     Dates: start: 20200909, end: 20200910
  12. AMCENESTRANT. [Suspect]
     Active Substance: AMCENESTRANT
     Indication: INVASIVE DUCTAL BREAST CARCINOMA
     Dosage: 200 MG, 1X/DAY
     Route: 048
     Dates: start: 20200617, end: 20200617
  13. LEXAURIN [Concomitant]
     Active Substance: BROMAZEPAM
     Indication: PROPHYLAXIS
     Dosage: UNK
     Route: 048
     Dates: start: 201405
  14. ORTANOL [OMEPRAZOLE] [Concomitant]
     Active Substance: OMEPRAZOLE
     Indication: PROPHYLAXIS
     Dosage: UNK
     Route: 048
     Dates: start: 2014
  15. LYRICA [Concomitant]
     Active Substance: PREGABALIN
     Indication: PROPHYLAXIS
     Dosage: UNK
     Route: 048
     Dates: start: 202005
  16. FRAXIPARIN [Concomitant]
     Active Substance: NADROPARIN CALCIUM
     Dosage: UNK
     Route: 003
     Dates: start: 20200812, end: 20200923

REACTIONS (1)
  - Deep vein thrombosis [Recovered/Resolved with Sequelae]

NARRATIVE: CASE EVENT DATE: 20200911
